FAERS Safety Report 6115358-5 (Version None)
Quarter: 2009Q1

REPORT INFORMATION
  Report Type: 
  Country: None (occurrence: None)
  Receive Date: 20090313
  Receipt Date: 20090303
  Transmission Date: 20090719
  Serious: Yes (Other)
  Sender: FDA-Public Use
  Company Number: AT-PFIZER INC-2009175503

PATIENT

DRUGS (2)
  1. DOXORUBICIN HCL [Suspect]
     Indication: BREAST CANCER
     Dosage: 40 MG/M2 ON DAY 1
     Route: 042
  2. VINORELBINE [Suspect]
     Indication: BREAST CANCER
     Dosage: 30 MG/M2,ON DAY 1 AND 15 EVERY 4 WEEKS
     Route: 042

REACTIONS (1)
  - PALMAR-PLANTAR ERYTHRODYSAESTHESIA SYNDROME [None]
